FAERS Safety Report 17235621 (Version 1)
Quarter: 2020Q1

REPORT INFORMATION
  Report Type: Spontaneous
  Country: US (occurrence: US)
  Receive Date: 20200106
  Receipt Date: 20200106
  Transmission Date: 20200409
  Serious: Yes (Other)
  Sender: FDA-Public Use
  Company Number: US-DRREDDYS-USA/USA/20/0118151

PATIENT
  Sex: Male

DRUGS (1)
  1. ZENATANE [Suspect]
     Active Substance: ISOTRETINOIN
     Indication: ACNE
     Dosage: RMA ISSUE DATES WERE NOTED AS 05 SEPTEMBER 2019, 03 OCTOBER 2019, 05 NOVEMBER 2019 AND 03 DECEMBER 2
     Route: 048
     Dates: start: 20190905

REACTIONS (2)
  - Haematochezia [Unknown]
  - Depression [Unknown]
